FAERS Safety Report 16809437 (Version 1)
Quarter: 2019Q4

REPORT INFORMATION
  Report Type: Spontaneous
  Country: US (occurrence: US)
  Receive Date: 20190915
  Receipt Date: 20190915
  Transmission Date: 20200122
  Serious: Yes (Disabling)
  Sender: FDA-Public Use
  Company Number: None

PATIENT
  Age: 50 Year
  Sex: Male
  Weight: 95 kg

DRUGS (9)
  1. ASPIRIN 81 MG [Concomitant]
     Active Substance: ASPIRIN
  2. PREDNISONE 3 MG [Concomitant]
  3. VALGANCICLOVIR 450 MG 2 TABS DAILY [Concomitant]
  4. PROGRAF 3 MG DAILY [Concomitant]
  5. VASCEPA 2 GR [Concomitant]
  6. DAPSONE 100 MG [Concomitant]
  7. CRESTOR [Concomitant]
     Active Substance: ROSUVASTATIN CALCIUM
  8. NYSTATIN MOUTH SUSPENSION [Concomitant]
  9. MYCOPHENOLATE MOFE 250 MG CAP [Suspect]
     Active Substance: MYCOPHENOLATE MOFETIL
     Indication: HEART TRANSPLANT
     Dosage: ?          QUANTITY:6 CAPSULE(S);?
     Route: 048
     Dates: start: 20190827, end: 20190912

REACTIONS (6)
  - Condition aggravated [None]
  - Product dispensing error [None]
  - Heart transplant [None]
  - Incorrect dose administered [None]
  - Anaemia [None]
  - Renal impairment [None]

NARRATIVE: CASE EVENT DATE: 20190912
